FAERS Safety Report 16710697 (Version 1)
Quarter: 2019Q3

REPORT INFORMATION
  Report Type: Spontaneous
  Country: FR (occurrence: FR)
  Receive Date: 20190816
  Receipt Date: 20190816
  Transmission Date: 20191004
  Serious: Yes (Hospitalization)
  Sender: FDA-Public Use
  Company Number: FR-MYLANLABS-2019M1075518

PATIENT
  Age: 64 Year
  Sex: Male
  Weight: 147 kg

DRUGS (9)
  1. ELIQUIS [Concomitant]
     Active Substance: APIXABAN
     Dosage: 10 MILLIGRAM, QD
     Route: 048
  2. RAMIPRIL. [Suspect]
     Active Substance: RAMIPRIL
     Indication: HYPERTENSION
     Dosage: 2.5 MILLIGRAM, QD
     Route: 048
     Dates: end: 20180411
  3. BISOPROLOL                         /00802602/ [Concomitant]
     Active Substance: BISOPROLOL
     Dosage: 5 MILLIGRAM, QD
     Route: 048
  4. INSPRA [Concomitant]
     Active Substance: EPLERENONE
     Dosage: 50 MILLIGRAM, QD
     Route: 048
  5. INEXIUM                            /01479302/ [Concomitant]
     Active Substance: ESOMEPRAZOLE MAGNESIUM
     Dosage: 40 MILLIGRAM, QD
     Route: 048
  6. FUROSEMIDE. [Suspect]
     Active Substance: FUROSEMIDE
     Indication: OEDEMA PERIPHERAL
     Dosage: UNK
     Dates: end: 20180411
  7. METFORMINE                         /00082701/ [Concomitant]
     Active Substance: METFORMIN HYDROCHLORIDE
     Dosage: 1700 MILLIGRAM, QD
     Route: 048
  8. AMIODARONE                         /00133102/ [Concomitant]
     Active Substance: AMIODARONE
     Dosage: 200 MILLIGRAM, QD
     Route: 048
  9. DIFFU K [Concomitant]
     Active Substance: POTASSIUM CHLORIDE
     Dosage: 1200 MILLIGRAM, QD
     Route: 048

REACTIONS (1)
  - Acute kidney injury [Recovered/Resolved]

NARRATIVE: CASE EVENT DATE: 20180411
